FAERS Safety Report 7471707-7 (Version None)
Quarter: 2011Q2

REPORT INFORMATION
  Report Type: 
  Country: None (occurrence: None)
  Receive Date: 20110511
  Receipt Date: 20110427
  Transmission Date: 20111010
  Serious: Yes (Hospitalization)
  Sender: FDA-Public Use
  Company Number: US-JNJFOC-20110500090

PATIENT
  Age: 52 Year
  Sex: Male
  Weight: 81.65 kg

DRUGS (8)
  1. TRICOR [Concomitant]
     Indication: BLOOD CHOLESTEROL
     Route: 048
  2. COGENTIN [Concomitant]
     Indication: ADVERSE DRUG REACTION
     Route: 048
  3. LIPITOR [Concomitant]
     Indication: BLOOD CHOLESTEROL
     Route: 048
  4. ASPIRIN [Concomitant]
     Indication: PROPHYLAXIS
     Route: 048
  5. MICARDIS [Concomitant]
     Indication: CARDIAC DISORDER
     Route: 048
  6. RISPERDAL CONSTA [Suspect]
     Indication: SCHIZOPHRENIA
     Route: 030
  7. TAMSULOSIN HCL [Concomitant]
     Indication: PROSTATIC DISORDER
     Route: 048
  8. UNKNOWN CHOLESTEROL MEDICATION [Concomitant]
     Indication: BLOOD CHOLESTEROL
     Route: 048

REACTIONS (5)
  - FEAR [None]
  - DRUG INEFFECTIVE [None]
  - ABNORMAL BEHAVIOUR [None]
  - THINKING ABNORMAL [None]
  - LICHEN PLANUS [None]
